FAERS Safety Report 7577688-X (Version None)
Quarter: 2011Q2

REPORT INFORMATION
  Report Type: 
  Country: None (occurrence: None)
  Receive Date: 20110621
  Receipt Date: 20110606
  Transmission Date: 20111010
  Serious: Yes (Death, Other)
  Sender: FDA-Public Use
  Company Number: 2011MA006874

PATIENT
  Age: 33 Year
  Sex: Male

DRUGS (7)
  1. FLUNITRAZEPAM [Concomitant]
  2. ALCOHOL (ETHANOL) [Suspect]
  3. DIAZEPAM [Suspect]
  4. MIRTAZAPINE [Concomitant]
  5. SODIUM OXYBATE [Suspect]
  6. PRORIOMAZINE [Concomitant]
  7. MORPHINE [Concomitant]

REACTIONS (2)
  - TOXICITY TO VARIOUS AGENTS [None]
  - OVERDOSE [None]
